FAERS Safety Report 25078306 (Version 1)
Quarter: 2025Q1

REPORT INFORMATION
  Report Type: Spontaneous
  Country: US (occurrence: US)
  Receive Date: 20250314
  Receipt Date: 20250314
  Transmission Date: 20250409
  Serious: Yes (Other)
  Sender: COOPERSURGICAL
  Company Number: US-COOPERSURGICAL, INC.-2025CPS001725

PATIENT
  Age: 21 Year
  Sex: Female
  Weight: 61.224 kg

DRUGS (1)
  1. PARAGARD T 380A [Suspect]
     Active Substance: COPPER
     Indication: Contraception
     Route: 015
     Dates: start: 200807

REACTIONS (22)
  - Vanishing twin syndrome [Recovered/Resolved]
  - Uterine cancer [Unknown]
  - Cervix carcinoma [Unknown]
  - Injury [Unknown]
  - Device breakage [Unknown]
  - Foreign body in reproductive tract [Unknown]
  - Complication of device removal [Unknown]
  - Migraine [Recovered/Resolved]
  - Vomiting [Unknown]
  - Anxiety [Not Recovered/Not Resolved]
  - Depression [Not Recovered/Not Resolved]
  - Headache [Unknown]
  - Procedural pain [Recovered/Resolved]
  - Procedural haemorrhage [Recovered/Resolved]
  - Procedural nausea [Recovered/Resolved]
  - Procedural vomiting [Recovered/Resolved]
  - Dizziness [Recovered/Resolved]
  - Back pain [Unknown]
  - Nausea [Unknown]
  - Muscle spasms [Recovered/Resolved]
  - Abnormal uterine bleeding [Unknown]
  - Pain [Unknown]

NARRATIVE: CASE EVENT DATE: 20080701
